FAERS Safety Report 7685727-0 (Version None)
Quarter: 2011Q3

REPORT INFORMATION
  Report Type: 
  Country: None (occurrence: None)
  Receive Date: 20110816
  Receipt Date: 20110805
  Transmission Date: 20111222
  Serious: Yes (Other)
  Sender: FDA-Public Use
  Company Number: US-MYLANLABS-2011S1012587

PATIENT
  Age: 42 Year
  Sex: Female

DRUGS (9)
  1. AMNESTEEM [Suspect]
     Route: 048
     Dates: end: 20110403
  2. ADDERALL 5 [Concomitant]
  3. ADVIL LIQUI-GELS [Concomitant]
  4. MIRAPEX [Concomitant]
  5. PRAZOSIN HCL [Concomitant]
  6. AMNESTEEM [Suspect]
     Route: 048
     Dates: start: 20110105
  7. BENADRYL [Concomitant]
  8. NEURONTIN [Concomitant]
  9. VICODIN [Concomitant]

REACTIONS (2)
  - ACARODERMATITIS [None]
  - DELUSIONAL DISORDER, UNSPECIFIED TYPE [None]
